FAERS Safety Report 8002703-9 (Version None)
Quarter: 2011Q4

REPORT INFORMATION
  Report Type: 
  Country: None (occurrence: None)
  Receive Date: 20111222
  Receipt Date: 20111213
  Transmission Date: 20120403
  Serious: Yes (Hospitalization)
  Sender: FDA-Public Use
  Company Number: JP-MERCK-1112USA00305

PATIENT
  Age: 81 Year
  Sex: Female
  Weight: 41 kg

DRUGS (4)
  1. TRICOR [Concomitant]
     Indication: HYPERLIPIDAEMIA
     Route: 048
     Dates: start: 20100125
  2. FOSAMAX [Suspect]
     Indication: OSTEOPOROSIS
     Route: 048
     Dates: start: 20091130, end: 20110809
  3. DIOVAN [Concomitant]
     Indication: HYPERTENSION
     Route: 048
     Dates: start: 20070502
  4. ATELEC [Concomitant]
     Indication: HYPERTENSION
     Route: 048
     Dates: start: 20070502

REACTIONS (5)
  - FEMUR FRACTURE [None]
  - OSTEOSCLEROSIS [None]
  - SPINAL COMPRESSION FRACTURE [None]
  - FALL [None]
  - BONE PAIN [None]
